FAERS Safety Report 9772529 (Version 2)
Quarter: 2014Q1

REPORT INFORMATION
  Report Type: Spontaneous
  Country: US (occurrence: None)
  Receive Date: 20131218
  Receipt Date: 20140318
  Transmission Date: 20141002
  Serious: Yes (Other)
  Sender: FDA-Public Use
  Company Number: 2013CT000095

PATIENT
  Age: 60 Year
  Sex: Female
  Weight: 117.94 kg

DRUGS (4)
  1. KORLYM [Suspect]
     Indication: PITUITARY-DEPENDENT CUSHING^S SYNDROME
     Route: 048
     Dates: start: 20130909
  2. INSULIN [Concomitant]
  3. KCL [Concomitant]
  4. WARFARIN [Concomitant]

REACTIONS (15)
  - Restless legs syndrome [None]
  - Chest pain [None]
  - Asthenia [None]
  - Erythema [None]
  - Oedema peripheral [None]
  - Malaise [None]
  - Sleep disorder [None]
  - Thrombosis [None]
  - Condition aggravated [None]
  - Abdominal distension [None]
  - Abdominal pain [None]
  - Pain in extremity [None]
  - Feeling hot [None]
  - Gait disturbance [None]
  - Abdominal rigidity [None]
